FAERS Safety Report 8930203 (Version 2)
Quarter: 2013Q1

REPORT INFORMATION
  Report Type: Spontaneous
  Country: US (occurrence: US)
  Receive Date: 20121128
  Receipt Date: 20130201
  Transmission Date: 20140127
  Serious: Yes (Other)
  Sender: FDA-Public Use
  Company Number: US-GILEAD-2012-0065109

PATIENT
  Age: 54 Year
  Sex: Female

DRUGS (11)
  1. LETAIRIS [Suspect]
     Indication: PULMONARY HYPERTENSION
     Dosage: 5 MG, QD
     Route: 048
     Dates: start: 20120320, end: 20120502
  2. HYDROCODONE/APAP [Concomitant]
  3. SPIRONOLACTONE [Concomitant]
  4. ZOLPIDEM [Concomitant]
  5. KCL [Concomitant]
  6. MORPHINE [Concomitant]
  7. FUROSEMIDE [Concomitant]
  8. CARVEDILOL [Concomitant]
  9. IPRATROPIUM [Concomitant]
  10. ALBUTEROL                          /00139501/ [Concomitant]
  11. TYVASO [Concomitant]

REACTIONS (3)
  - Oedema peripheral [Not Recovered/Not Resolved]
  - Vomiting [Not Recovered/Not Resolved]
  - Headache [Unknown]
